FAERS Safety Report 9231918 (Version 1)
Quarter: 2013Q2

REPORT INFORMATION
  Report Type: Spontaneous
  Country: DE (occurrence: DE)
  Receive Date: 20130415
  Receipt Date: 20130415
  Transmission Date: 20140414
  Serious: Yes (Hospitalization)
  Sender: FDA-Public Use
  Company Number: DE-ELI_LILLY_AND_COMPANY-DE201304002932

PATIENT
  Sex: Male

DRUGS (3)
  1. FORSTEO [Suspect]
     Indication: OSTEOPOROSIS
     Dosage: UNK, QD
     Route: 058
     Dates: start: 20120720
  2. DICLOFENAC [Concomitant]
     Dosage: UNK, UNKNOWN
  3. SPASMEX [Concomitant]
     Dosage: UNK, UNKNOWN

REACTIONS (1)
  - Urinary tract disorder [Recovering/Resolving]
